FAERS Safety Report 21641757 (Version 8)
Quarter: 2023Q2

REPORT INFORMATION
  Report Type: Spontaneous
  Country: CA (occurrence: CA)
  Receive Date: 20221125
  Receipt Date: 20230521
  Transmission Date: 20230722
  Serious: Yes (Other)
  Sender: FDA-Public Use
  Company Number: CA-CELLTRION INC.-2022CA009911

PATIENT

DRUGS (23)
  1. INFLECTRA [Suspect]
     Active Substance: INFLIXIMAB-DYYB
     Indication: Colitis ulcerative
     Dosage: 5 MG/KG, INDUCTION DOSES AT WEEK 0, 2 AND 6, THEN EVERY 8 WEEKS
     Route: 042
     Dates: start: 20220713
  2. INFLECTRA [Suspect]
     Active Substance: INFLIXIMAB-DYYB
     Dosage: 5 MG/KG, INDUCTION DOSES AT WEEK 0, 2 AND 6, THEN EVERY 8 WEEKS
     Route: 042
     Dates: start: 20220713, end: 20230222
  3. INFLECTRA [Suspect]
     Active Substance: INFLIXIMAB-DYYB
     Dosage: 5 MG/KG (700 MG), INDUCTION DOSES AT WEEK 0, 2 AND 6, THEN EVERY 8 WEEKS
     Route: 042
     Dates: start: 20220728
  4. INFLECTRA [Suspect]
     Active Substance: INFLIXIMAB-DYYB
     Dosage: 5 MG/KG, INDUCTION DOSES AT WEEK 0, 2 AND 6, THEN EVERY 8 WEEKS (RECEIVED 725MG)
     Route: 042
     Dates: start: 20220824
  5. INFLECTRA [Suspect]
     Active Substance: INFLIXIMAB-DYYB
     Dosage: 5 MG/KG, INDUCTION DOSES AT WEEK 0, 2 AND 6, THEN EVERY 8 WEEKS (RECEIVED 725MG)
     Route: 042
     Dates: start: 20221102
  6. INFLECTRA [Suspect]
     Active Substance: INFLIXIMAB-DYYB
     Dosage: 5 MG/KG, INDUCTION DOSES AT WEEK 0, 2 AND 6, THEN EVERY 8 WEEKS (RECEIVED 725MG)
     Route: 042
     Dates: start: 20221102
  7. INFLECTRA [Suspect]
     Active Substance: INFLIXIMAB-DYYB
     Dosage: 5 MG/KG, INDUCTION DOSES AT WEEK 0, 2 AND 6, THEN EVERY 8 WEEKS
     Route: 042
     Dates: start: 20221228
  8. INFLECTRA [Suspect]
     Active Substance: INFLIXIMAB-DYYB
     Dosage: 765 MG 5 MG/KG - 765 MG - EVERY 8 WEEKS
     Route: 042
     Dates: start: 20230222
  9. INFLECTRA [Suspect]
     Active Substance: INFLIXIMAB-DYYB
     Dosage: 5 MG/KG (740MG),EVERY 6 WEEKS
     Route: 042
     Dates: start: 20230405, end: 20230405
  10. BENADRYL [Concomitant]
     Active Substance: DIPHENHYDRAMINE HYDROCHLORIDE
     Indication: Premedication
     Dosage: UNK
     Route: 042
     Dates: start: 20230405, end: 20230405
  11. BISOPROLOL [Concomitant]
     Active Substance: BISOPROLOL
     Dosage: UNK
  12. CELEBREX [Concomitant]
     Active Substance: CELECOXIB
     Dosage: UNK
  13. PERINDOPRIL ARGININE [Concomitant]
     Active Substance: PERINDOPRIL ARGININE
     Dosage: UNK
  14. IMOVANE [Concomitant]
     Active Substance: ZOPICLONE
     Dosage: UNK
  15. IMURAN [Concomitant]
     Active Substance: AZATHIOPRINE
     Dosage: UNK, STOPPED
  16. OXYCODONE [Concomitant]
     Active Substance: OXYCODONE
     Dosage: UNK, INFREQUENTLY. NOT ANY MORE
  17. RABEPRAZOLE SODIUM [Concomitant]
     Active Substance: RABEPRAZOLE SODIUM
     Dosage: UNK
  18. PREDNISONE [Concomitant]
     Active Substance: PREDNISONE
     Dosage: 20 MG, NOW ADVISED HER TO TAPER
  19. ROPINIROLE [Concomitant]
     Active Substance: ROPINIROLE
     Dosage: UNK
  20. MESALAMINE [Concomitant]
     Active Substance: MESALAMINE
     Dosage: 2 G, 2X/DAY
  21. SERTRALINE [Concomitant]
     Active Substance: SERTRALINE HYDROCHLORIDE
     Dosage: UNK
  22. SYNTHROID [Concomitant]
     Active Substance: LEVOTHYROXINE SODIUM
     Dosage: UNK
  23. ZOPICLONE [Concomitant]
     Active Substance: ZOPICLONE
     Dosage: UNK

REACTIONS (21)
  - Haematochezia [Unknown]
  - Urticaria [Recovered/Resolved]
  - Off label use [Unknown]
  - Off label use [Unknown]
  - Intentional product use issue [Unknown]
  - Inappropriate schedule of product administration [Unknown]
  - Product prescribing error [Unknown]
  - Condition aggravated [Not Recovered/Not Resolved]
  - Constipation [Unknown]
  - Weight increased [Unknown]
  - Exposure to SARS-CoV-2 [Unknown]
  - Malaise [Unknown]
  - Bowel movement irregularity [Unknown]
  - Headache [Unknown]
  - Arthralgia [Not Recovered/Not Resolved]
  - COVID-19 [Recovered/Resolved]
  - Pruritus [Recovered/Resolved]
  - Periorbital swelling [Recovered/Resolved]
  - Erythema [Recovered/Resolved]
  - Mass [Recovered/Resolved]
  - Drug specific antibody present [Unknown]

NARRATIVE: CASE EVENT DATE: 20220101
